FAERS Safety Report 26176740 (Version 1)
Quarter: 2025Q4

REPORT INFORMATION
  Report Type: Spontaneous
  Country: US (occurrence: US)
  Receive Date: 20251218
  Receipt Date: 20251218
  Transmission Date: 20260118
  Serious: No
  Sender: BRISTOL-MYERS SQUIBB COMPANY
  Company Number: US-BRISTOL-MYERS SQUIBB COMPANY-2025-170190

PATIENT
  Age: 70 Year
  Sex: Female

DRUGS (3)
  1. ELIQUIS [Interacting]
     Active Substance: APIXABAN
     Indication: Product used for unknown indication
  2. BRAFTOVI [Interacting]
     Active Substance: ENCORAFENIB
     Indication: Product used for unknown indication
  3. AMIODARONE [Interacting]
     Active Substance: AMIODARONE
     Indication: Product used for unknown indication

REACTIONS (1)
  - Drug interaction [Unknown]
